FAERS Safety Report 6062592-9 (Version None)
Quarter: 2009Q1

REPORT INFORMATION
  Report Type: 
  Country: None (occurrence: None)
  Receive Date: 20090203
  Receipt Date: 20090123
  Transmission Date: 20090719
  Serious: Yes (Hospitalization)
  Sender: FDA-Public Use
  Company Number: GB-PFIZER INC-2008155702

PATIENT

DRUGS (2)
  1. DEPO-PROVERA [Suspect]
     Route: 030
  2. RISPERIDONE [Concomitant]

REACTIONS (1)
  - SYNCOPE [None]
